FAERS Safety Report 5948383-5 (Version None)
Quarter: 2008Q4

REPORT INFORMATION
  Report Type: 
  Country: None (occurrence: None)
  Receive Date: 20081110
  Receipt Date: 20081110
  Transmission Date: 20090506
  Serious: Yes (Other)
  Sender: FDA-Public Use
  Company Number: None

PATIENT
  Sex: Female
  Weight: 68.9467 kg

DRUGS (3)
  1. SEROQUEL [Suspect]
     Indication: SCHIZOPHRENIA, PARANOID TYPE
     Dosage: 300 MG AT BEDTIME PO
     Route: 048
     Dates: start: 20080123, end: 20081107
  2. REQUIP [Suspect]
     Indication: BIPOLAR DISORDER
     Dosage: REQUIP AT BEDTIME PO
     Route: 048
     Dates: start: 20080215, end: 20081107
  3. CLONAZEPAM [Concomitant]

REACTIONS (4)
  - ECONOMIC PROBLEM [None]
  - GAMBLING [None]
  - IMPULSIVE BEHAVIOUR [None]
  - MANIA [None]
